FAERS Safety Report 10004589 (Version 3)
Quarter: 2014Q2

REPORT INFORMATION
  Report Type: Spontaneous
  Country: US (occurrence: US)
  Receive Date: 20140312
  Receipt Date: 20140611
  Transmission Date: 20141212
  Serious: Yes (Other)
  Sender: FDA-Public Use
  Company Number: US-INCYTE CORPORATION-2013IN002996

PATIENT
  Age: 72 Year
  Sex: Female
  Weight: 58.5 kg

DRUGS (7)
  1. JAKAFI [Suspect]
     Indication: MYELOFIBROSIS
     Dosage: 5 MG, BID
     Route: 048
     Dates: start: 20131121
  2. LEVOTHYROXINE [Concomitant]
  3. ASPIRIN [Concomitant]
     Dosage: 81 MG
  4. MULTIVITAMINS [Concomitant]
  5. NEURONTIN [Concomitant]
  6. VICODIN [Concomitant]
  7. XANAX [Concomitant]

REACTIONS (5)
  - Haemoglobin decreased [Recovering/Resolving]
  - Alopecia [Unknown]
  - Palpitations [Recovering/Resolving]
  - Chills [Unknown]
  - Blood count abnormal [Unknown]
